FAERS Safety Report 6482905-3 (Version None)
Quarter: 2009Q4

REPORT INFORMATION
  Report Type: 
  Country: None (occurrence: None)
  Receive Date: 20091209
  Receipt Date: 20091028
  Transmission Date: 20100525
  Serious: No
  Sender: FDA-Public Use
  Company Number: US-AMGEN-KDL371797

PATIENT
  Sex: Female

DRUGS (2)
  1. ENBREL [Suspect]
     Indication: PSORIATIC ARTHROPATHY
     Route: 058
     Dates: start: 20091020
  2. SULFASALAZINE [Concomitant]
     Route: 048

REACTIONS (2)
  - MUSCLE SPASMS [None]
  - MUSCULAR WEAKNESS [None]
